FAERS Safety Report 15654009 (Version 1)
Quarter: 2018Q4

REPORT INFORMATION
  Report Type: Report from Study
  Country: CH (occurrence: CH)
  Receive Date: 20181125
  Receipt Date: 20181125
  Transmission Date: 20190205
  Serious: Yes (Other)
  Sender: FDA-Public Use
  Company Number: CH-BAYER-2018-215632

PATIENT
  Age: 42 Year
  Sex: Male

DRUGS (1)
  1. SORAFENIB [Suspect]
     Active Substance: SORAFENIB
     Indication: MYELOID LEUKAEMIA
     Dosage: 1 MONTH ON/1 MONTH OFF
     Route: 048

REACTIONS (5)
  - Loss of personal independence in daily activities [None]
  - Palmar-plantar erythrodysaesthesia syndrome [None]
  - Off label use [None]
  - Treatment noncompliance [None]
  - Product use in unapproved indication [None]
